FAERS Safety Report 7869199-9 (Version None)
Quarter: 2011Q4

REPORT INFORMATION
  Report Type: 
  Country: None (occurrence: None)
  Receive Date: 20111028
  Receipt Date: 20101228
  Transmission Date: 20120403
  Serious: No
  Sender: FDA-Public Use
  Company Number: US-AMGEN-USASP2010011912

PATIENT
  Sex: Female

DRUGS (1)
  1. ENBREL [Suspect]
     Indication: RHEUMATOID ARTHRITIS
     Dosage: 25 MG, UNK
     Dates: start: 20070101, end: 20101201

REACTIONS (8)
  - ORAL CANDIDIASIS [None]
  - INJECTION SITE DISCOLOURATION [None]
  - INJECTION SITE PRURITUS [None]
  - DYSURIA [None]
  - ARTHRALGIA [None]
  - INSOMNIA [None]
  - SKIN DISORDER [None]
  - DIARRHOEA [None]
